FAERS Safety Report 10015054 (Version 1)
Quarter: 2014Q1

REPORT INFORMATION
  Report Type: Spontaneous
  Country: SE (occurrence: SE)
  Receive Date: 20140317
  Receipt Date: 20140317
  Transmission Date: 20141002
  Serious: Yes (Death)
  Sender: FDA-Public Use
  Company Number: SE-ACTELION-A-CH2014-96129

PATIENT
  Age: 82 Year
  Sex: Female

DRUGS (2)
  1. TRACLEER [Suspect]
     Indication: PULMONARY ARTERIAL HYPERTENSION
     Dosage: 125 MG, BID
     Route: 048
     Dates: start: 20100623, end: 20140224
  2. TRACLEER [Suspect]
     Dosage: 62.5 MG, BID
     Route: 048
     Dates: start: 20100526, end: 20100623

REACTIONS (4)
  - Myocardial infarction [Fatal]
  - Syncope [Fatal]
  - Pulmonary arterial hypertension [Unknown]
  - Condition aggravated [Unknown]
